FAERS Safety Report 10247619 (Version 1)
Quarter: 2014Q2

REPORT INFORMATION
  Report Type: Spontaneous
  Country: US (occurrence: US)
  Receive Date: 20140619
  Receipt Date: 20140619
  Transmission Date: 20141212
  Serious: No
  Sender: FDA-Public Use
  Company Number: US-PFIZER INC-2014167606

PATIENT
  Age: 71 Year
  Sex: Female
  Weight: 117.91 kg

DRUGS (4)
  1. TOVIAZ [Suspect]
     Indication: HYPERTONIC BLADDER
     Dosage: 8 MG, DAILY
     Route: 048
     Dates: start: 2012
  2. WARFARIN [Concomitant]
     Indication: PULMONARY THROMBOSIS
     Dosage: UNK
  3. WARFARIN [Concomitant]
     Indication: PULMONARY EMBOLISM
  4. COUMADIN [Concomitant]
     Indication: THROMBOSIS
     Dosage: UNK

REACTIONS (1)
  - Dry mouth [Not Recovered/Not Resolved]
